FAERS Safety Report 7818407-9 (Version None)
Quarter: 2011Q4

REPORT INFORMATION
  Report Type: 
  Country: None (occurrence: None)
  Receive Date: 20111017
  Receipt Date: 20111004
  Transmission Date: 20120403
  Serious: Yes (Other)
  Sender: FDA-Public Use
  Company Number: GR-ASTRAZENECA-2011SE61530

PATIENT
  Sex: Male

DRUGS (2)
  1. CRESTOR [Suspect]
     Route: 048
  2. XANAX [Suspect]
     Dosage: BOUGHT OF 0.25 MG (1 PACKAGE), 0.50 MG (1 PACKAGE), 1 MG (1PACKAGE), CONSUMED 2 PILLS OF 0.25 MG

REACTIONS (6)
  - DRUG HYPERSENSITIVITY [None]
  - TACHYCARDIA [None]
  - ANXIETY [None]
  - SOFT TISSUE INJURY [None]
  - PAIN [None]
  - PANIC ATTACK [None]
